FAERS Safety Report 5410292-8 (Version None)
Quarter: 2007Q3

REPORT INFORMATION
  Report Type: 
  Country: None (occurrence: None)
  Receive Date: 20070808
  Receipt Date: 20070723
  Transmission Date: 20080115
  Serious: Yes (Hospitalization)
  Sender: FDA-Public Use
  Company Number: 2007VX001918

PATIENT
  Age: 61 Year
  Sex: Female
  Weight: 74.3899 kg

DRUGS (8)
  1. INTERFERON ALFACON-1 [Suspect]
     Indication: HEPATITIS C
     Dosage: 15 UG;QD;IM
     Route: 030
     Dates: start: 20070525
  2. RIBAVIRIN [Suspect]
     Indication: HEPATITIS C
     Dosage: 12000 MG;QD;PO
     Route: 048
     Dates: start: 20070525
  3. PROCRIT [Suspect]
     Indication: DRUG USE FOR UNKNOWN INDICATION
  4. PRANDIN [Concomitant]
  5. LANTUS [Concomitant]
  6. DIOVAN [Concomitant]
  7. NORVASC [Concomitant]
  8. AMBIEN [Concomitant]

REACTIONS (2)
  - CONVULSION [None]
  - SYNCOPE [None]
